FAERS Safety Report 7010458-X (Version None)
Quarter: 2010Q3

REPORT INFORMATION
  Report Type: 
  Country: None (occurrence: None)
  Receive Date: 20100923
  Receipt Date: 20100916
  Transmission Date: 20110219
  Serious: Yes (Hospitalization)
  Sender: FDA-Public Use
  Company Number: FR-ABBOTT-10P-056-0671393-00

PATIENT
  Sex: Male
  Weight: 63 kg

DRUGS (6)
  1. NORVIR [Suspect]
     Indication: HIV INFECTION
     Route: 048
     Dates: start: 20090824
  2. PROGRAF [Interacting]
     Indication: PRODUCT USED FOR UNKNOWN INDICATION
     Route: 048
     Dates: start: 20070101
  3. PREZISTA [Interacting]
     Indication: HIV INFECTION
     Route: 048
     Dates: start: 20090824
  4. VIREAD [Concomitant]
     Indication: HIV INFECTION
     Dates: start: 20090824
  5. INTELENCE [Concomitant]
     Indication: HIV INFECTION
  6. CELLCEPT [Concomitant]
     Indication: PRODUCT USED FOR UNKNOWN INDICATION

REACTIONS (3)
  - DRUG INTERACTION [None]
  - DRUG LEVEL INCREASED [None]
  - RENAL FUNCTION TEST ABNORMAL [None]
